FAERS Safety Report 9464345 (Version 4)
Quarter: 2013Q4

REPORT INFORMATION
  Report Type: Spontaneous
  Country: JP (occurrence: JP)
  Receive Date: 20130819
  Receipt Date: 20131210
  Transmission Date: 20140711
  Serious: Yes (Hospitalization)
  Sender: FDA-Public Use
  Company Number: JP-ROCHE-1260605

PATIENT
  Age: 59 Year
  Sex: Male
  Weight: 57 kg

DRUGS (2)
  1. ACTEMRA [Suspect]
     Indication: RHEUMATOID ARTHRITIS
     Route: 041
     Dates: start: 2011, end: 20120821
  2. ACTEMRA [Suspect]
     Indication: RHEUMATOID ARTHRITIS
     Route: 041
     Dates: start: 20121102, end: 20121102

REACTIONS (3)
  - Skin ulcer [Recovering/Resolving]
  - Pyoderma gangrenosum [Recovering/Resolving]
  - Cellulitis [Recovering/Resolving]
